FAERS Safety Report 25857028 (Version 3)
Quarter: 2025Q4

REPORT INFORMATION
  Report Type: Spontaneous
  Country: US (occurrence: US)
  Receive Date: 20250929
  Receipt Date: 20251103
  Transmission Date: 20260117
  Serious: No
  Sender: BIOGEN
  Company Number: US-BIOGEN-2025BI01324835

PATIENT
  Age: 35 Year
  Sex: Male

DRUGS (2)
  1. TYSABRI [Suspect]
     Active Substance: NATALIZUMAB
     Indication: Relapsing-remitting multiple sclerosis
     Dosage: ED: 12/2028
     Dates: start: 20240823, end: 20250813
  2. TYSABRI [Suspect]
     Active Substance: NATALIZUMAB

REACTIONS (2)
  - Nephrolithiasis [Not Recovered/Not Resolved]
  - Blood urine present [Unknown]
